FAERS Safety Report 5103658-7 (Version None)
Quarter: 2006Q3

REPORT INFORMATION
  Report Type: 
  Country: None (occurrence: None)
  Receive Date: 20060913
  Receipt Date: 20060804
  Transmission Date: 20061208
  Serious: Yes (Other)
  Sender: FDA-Public Use
  Company Number: PHBS2006JP11836

PATIENT
  Age: 65 Year
  Sex: Female

DRUGS (9)
  1. ZOMETA [Suspect]
     Indication: METASTASES TO BONE
     Dosage: 4 MG
     Route: 042
     Dates: start: 20060704, end: 20060704
  2. AREDIA [Suspect]
     Indication: METASTASES TO BONE
     Dosage: 45 MG
     Route: 042
     Dates: start: 20021002
  3. AREDIA [Suspect]
     Dosage: 90 MG
     Route: 042
     Dates: start: 20030628
  4. NAVELBINE [Concomitant]
     Dosage: UNK, UNK
     Route: 065
     Dates: start: 20060701
  5. HYSRON [Concomitant]
     Dosage: UNK, UNK
     Route: 065
     Dates: start: 19971001
  6. TAXOTERE [Concomitant]
     Dosage: 100 MG
     Dates: start: 20020201
  7. ENDOXAN [Concomitant]
     Dates: start: 19971001
  8. FARMORUBICIN [Concomitant]
     Dates: start: 19971001
  9. FLUOROURACIL [Concomitant]
     Dates: start: 19971001

REACTIONS (7)
  - BONE MARROW FAILURE [None]
  - MALIGNANT NEOPLASM PROGRESSION [None]
  - OSTEOMYELITIS [None]
  - PAIN IN JAW [None]
  - RASH PUSTULAR [None]
  - SWELLING [None]
  - TOOTH LOSS [None]
